FAERS Safety Report 5474152-9 (Version None)
Quarter: 2007Q3

REPORT INFORMATION
  Report Type: 
  Country: None (occurrence: None)
  Receive Date: 20070830
  Receipt Date: 20070510
  Transmission Date: 20080115
  Serious: Yes (Hospitalization)
  Sender: FDA-Public Use
  Company Number: 200710763US

PATIENT
  Age: 68 Year
  Sex: Male
  Weight: 84.09 kg

DRUGS (8)
  1. LASIX [Suspect]
     Indication: CARDIAC FAILURE CONGESTIVE
     Dosage: 20 MG QD
     Dates: start: 20070101
  2. LASIX [Suspect]
     Indication: CARDIAC FAILURE CONGESTIVE
     Dosage: 40 MG QD
     Dates: start: 20061231, end: 20061231
  3. LASIX [Suspect]
     Indication: CARDIAC FAILURE CONGESTIVE
     Dates: start: 20061227, end: 20061230
  4. LASIX [Suspect]
     Indication: CARDIAC FAILURE CONGESTIVE
     Dosage: 40 MG ONCE  IV
     Route: 042
     Dates: start: 20061226, end: 20061226
  5. LASIX [Suspect]
     Indication: CARDIAC FAILURE CONGESTIVE
     Dosage: 20 MG QD
     Dates: end: 20061225
  6. COUMADIN [Concomitant]
  7. VALETHAMATE BROMIDE (STUDY) [Concomitant]
  8. ASPIRIN [Concomitant]

REACTIONS (4)
  - BLOOD CREATININE INCREASED [None]
  - BLOOD UREA INCREASED [None]
  - HYPERKALAEMIA [None]
  - RENAL FAILURE ACUTE [None]
